FAERS Safety Report 21104141 (Version 2)
Quarter: 2022Q3

REPORT INFORMATION
  Report Type: Other
  Country: US (occurrence: US)
  Receive Date: 20220720
  Receipt Date: 20220818
  Transmission Date: 20221027
  Serious: Yes (Death, Hospitalization, Other)
  Sender: FDA-Public Use
  Company Number: US-GBT-014339

PATIENT
  Sex: Male

DRUGS (2)
  1. OXBRYTA [Suspect]
     Active Substance: VOXELOTOR
     Indication: Sickle cell disease
     Route: 048
  2. OXBRYTA [Suspect]
     Active Substance: VOXELOTOR
     Indication: Sickle cell disease
     Route: 048

REACTIONS (6)
  - Disease complication [Fatal]
  - Pain [Unknown]
  - Acute chest syndrome [Unknown]
  - Hospitalisation [Unknown]
  - Pneumonia [Unknown]
  - Intentional dose omission [Unknown]
